FAERS Safety Report 26204337 (Version 1)
Quarter: 2025Q4

REPORT INFORMATION
  Report Type: Spontaneous
  Country: TW (occurrence: TW)
  Receive Date: 20251226
  Receipt Date: 20251226
  Transmission Date: 20260119
  Serious: Yes (Death, Other)
  Sender: AMGEN
  Company Number: TW-AMGEN-TWNSP2025253191

PATIENT

DRUGS (1)
  1. PROLIA [Suspect]
     Active Substance: DENOSUMAB
     Indication: Osteoporosis
     Dosage: UNK
     Route: 065

REACTIONS (6)
  - Death [Fatal]
  - Periprosthetic fracture [Unknown]
  - Hip fracture [Unknown]
  - Osteoporotic fracture [Unknown]
  - Femoral neck fracture [Unknown]
  - Compression fracture [Unknown]
